APPROVED DRUG PRODUCT: BLUJEPA
Active Ingredient: GEPOTIDACIN MESYLATE
Strength: EQ 750MG BASE
Dosage Form/Route: TABLET;ORAL
Application: N218230 | Product #001
Applicant: GLAXOSMITHKLINE LLC
Approved: Mar 25, 2025 | RLD: Yes | RS: Yes | Type: RX

PATENTS:
Patent 10702521 | Expires: Aug 20, 2035
Patent 8389524 | Expires: Feb 12, 2029
Patent 11229646 | Expires: Aug 20, 2035

EXCLUSIVITY:
Code: I-978 | Date: Dec 11, 2028
Code: NCE | Date: Mar 25, 2030
Code: GAIN | Date: Mar 25, 2035